FAERS Safety Report 25286610 (Version 1)
Quarter: 2025Q2

REPORT INFORMATION
  Report Type: Spontaneous
  Country: US (occurrence: US)
  Receive Date: 20250509
  Receipt Date: 20250509
  Transmission Date: 20250717
  Serious: No
  Sender: BAXTER
  Company Number: US-BAXTER-2025BAX014948

PATIENT
  Sex: Male

DRUGS (2)
  1. INSULIN NOS [Suspect]
     Active Substance: INSULIN NOS
     Route: 041
     Dates: start: 20250430
  2. INSULIN NOS [Suspect]
     Active Substance: INSULIN NOS
     Route: 041
     Dates: start: 20250430

REACTIONS (2)
  - Drug ineffective [Unknown]
  - Device leakage [Unknown]

NARRATIVE: CASE EVENT DATE: 20250430
